FAERS Safety Report 14586937 (Version 1)
Quarter: 2018Q1

REPORT INFORMATION
  Report Type: Spontaneous
  Country: DE (occurrence: DE)
  Receive Date: 20180301
  Receipt Date: 20180301
  Transmission Date: 20180509
  Serious: Yes (Hospitalization, Other)
  Sender: FDA-Public Use
  Company Number: DE-AUROBINDO-AUR-APL-2018-010324

PATIENT
  Sex: Male

DRUGS (15)
  1. HUMIRA [Suspect]
     Active Substance: ADALIMUMAB
     Indication: PSORIASIS
     Dosage: ()
  2. ASPIRIN. [Concomitant]
     Active Substance: ASPIRIN
     Indication: PRODUCT USED FOR UNKNOWN INDICATION
  3. FLUTIFORM [Concomitant]
     Active Substance: FLUTICASONE PROPIONATE\FORMOTEROL FUMARATE
     Indication: PRODUCT USED FOR UNKNOWN INDICATION
  4. OPIPRAMOL [Concomitant]
     Active Substance: OPIPRAMOL
     Indication: PRODUCT USED FOR UNKNOWN INDICATION
     Dosage: AS NECESSARY
     Dates: end: 201606
  5. VENLAFAXINE [Suspect]
     Active Substance: VENLAFAXINE HYDROCHLORIDE
     Indication: PRODUCT USED FOR UNKNOWN INDICATION
  6. LORATADINE. [Concomitant]
     Active Substance: LORATADINE
     Indication: PRODUCT USED FOR UNKNOWN INDICATION
  7. ATORVASTATINE                      /01326101/ [Concomitant]
     Active Substance: ATORVASTATIN
     Indication: PRODUCT USED FOR UNKNOWN INDICATION
  8. HUMIRA [Suspect]
     Active Substance: ADALIMUMAB
     Route: 058
     Dates: start: 2016, end: 20160419
  9. DICLOFENAC [Concomitant]
     Active Substance: DICLOFENAC
     Indication: PRODUCT USED FOR UNKNOWN INDICATION
     Dosage: AS NECESSARY
  10. SILICA [Concomitant]
     Active Substance: SILICON DIOXIDE
     Indication: PRODUCT USED FOR UNKNOWN INDICATION
     Dosage: (2)
  11. MAGNESIUM [Concomitant]
     Active Substance: MAGNESIUM
     Indication: PRODUCT USED FOR UNKNOWN INDICATION
  12. VITAMIN B12 [Concomitant]
     Active Substance: CYANOCOBALAMIN
     Indication: PRODUCT USED FOR UNKNOWN INDICATION
  13. SIMETHICONE (DIMETHICONE) [Concomitant]
     Active Substance: DIMETHICONE
     Indication: PRODUCT USED FOR UNKNOWN INDICATION
     Dosage: ()AS NECESSARY
     Dates: end: 201606
  14. HUMIRA [Suspect]
     Active Substance: ADALIMUMAB
     Indication: PSORIATIC ARTHROPATHY
     Route: 058
     Dates: start: 201503, end: 20160323
  15. BUDES [Concomitant]
     Active Substance: BUDESONIDE
     Indication: PRODUCT USED FOR UNKNOWN INDICATION
     Dosage: (2)

REACTIONS (34)
  - CSF protein increased [Unknown]
  - Lipid metabolism disorder [Unknown]
  - Cognitive disorder [Unknown]
  - Cerebral microangiopathy [Not Recovered/Not Resolved]
  - White matter lesion [Unknown]
  - Infection susceptibility increased [Recovered/Resolved]
  - Depressed mood [Not Recovered/Not Resolved]
  - Nuclear magnetic resonance imaging spinal abnormal [Unknown]
  - Fatigue [Not Recovered/Not Resolved]
  - Fatigue [Not Recovered/Not Resolved]
  - Peripheral sensory neuropathy [Unknown]
  - Blood cholesterol increased [Unknown]
  - Visual evoked potentials abnormal [Unknown]
  - Intervertebral disc protrusion [Unknown]
  - Eosinophil count increased [Unknown]
  - Spondylolisthesis [Unknown]
  - Alanine aminotransferase increased [Unknown]
  - Blood creatine phosphokinase increased [Unknown]
  - Spinal osteoarthritis [Unknown]
  - Creatinine renal clearance increased [Unknown]
  - Drug ineffective [Not Recovered/Not Resolved]
  - Double stranded DNA antibody positive [Unknown]
  - Tension headache [Not Recovered/Not Resolved]
  - Physical examination abnormal [Unknown]
  - Leukoencephalopathy [Not Recovered/Not Resolved]
  - Chest X-ray abnormal [Unknown]
  - Bacterial test positive [Unknown]
  - Psoriasis [Not Recovered/Not Resolved]
  - Ultrasound skull abnormal [Unknown]
  - Disturbance in attention [Not Recovered/Not Resolved]
  - Depression [Unknown]
  - Saccadic eye movement [Unknown]
  - Cerebral autosomal dominant arteriopathy with subcortical infarcts and leukoencephalopathy [Unknown]
  - Central nervous system inflammation [Unknown]

NARRATIVE: CASE EVENT DATE: 2015
